FAERS Safety Report 21730127 (Version 1)
Quarter: 2022Q4

REPORT INFORMATION
  Report Type: Report from Study
  Country: US (occurrence: US)
  Receive Date: 20221214
  Receipt Date: 20221214
  Transmission Date: 20230112
  Serious: Yes (Other)
  Sender: FDA-Public Use
  Company Number: US-ABBVIE-4235510

PATIENT
  Age: 76 Year
  Sex: Female

DRUGS (3)
  1. RINVOQ [Suspect]
     Active Substance: UPADACITINIB
     Indication: Rheumatoid arthritis
     Dosage: DRUG END DATE: 2022
     Route: 048
     Dates: start: 202203
  2. RINVOQ [Suspect]
     Active Substance: UPADACITINIB
     Indication: Rheumatoid arthritis
     Route: 048
     Dates: start: 202211
  3. ADVAIR HFA [Concomitant]
     Active Substance: FLUTICASONE PROPIONATE\SALMETEROL XINAFOATE
     Indication: Product used for unknown indication

REACTIONS (11)
  - Knee arthroplasty [Unknown]
  - Hip fracture [Unknown]
  - Pain in extremity [Unknown]
  - Fall [Unknown]
  - Asthma [Unknown]
  - Psoriatic arthropathy [Unknown]
  - Foot fracture [Unknown]
  - Neck pain [Unknown]
  - Seasonal allergy [Unknown]
  - Allergy to animal [Unknown]
  - Back pain [Unknown]

NARRATIVE: CASE EVENT DATE: 20221209
